FAERS Safety Report 15668498 (Version 1)
Quarter: 2018Q4

REPORT INFORMATION
  Report Type: Spontaneous
  Country: AU (occurrence: AU)
  Receive Date: 20181129
  Receipt Date: 20181129
  Transmission Date: 20190205
  Serious: Yes (Other)
  Sender: FDA-Public Use
  Company Number: AU-009507513-1811AUS009720

PATIENT
  Age: 41 Year
  Sex: Female

DRUGS (6)
  1. SYNAREL [Concomitant]
     Active Substance: NAFARELIN ACETATE
     Indication: IN VITRO FERTILISATION
     Dosage: UNK
  2. MENOPUR [Suspect]
     Active Substance: FOLLITROPIN\LUTEINIZING HORMONE
     Indication: IN VITRO FERTILISATION
     Dosage: 20 INJECTION (MORE THAN 30 DOSES, APPROX 11-12, FOR 3 CYCLES)
     Dates: start: 20170309, end: 20180206
  3. PUREGON (FOLLITROPIN BETA) [Suspect]
     Active Substance: FOLLITROPIN
     Indication: IN VITRO FERTILISATION
     Dosage: 20 INJECTION DAILY (MORE THAN 50 DOSES, APPROX 12-14 PER CYCLE, FOR 4 CYCLES)
     Dates: start: 20161104, end: 20171102
  4. PREDNISONE. [Concomitant]
     Active Substance: PREDNISONE
     Indication: IN VITRO FERTILISATION
     Dosage: UNK
  5. SAIZEN [Concomitant]
     Active Substance: SOMATROPIN
     Indication: IN VITRO FERTILISATION
     Dosage: UNK
  6. GONAL-F [Concomitant]
     Active Substance: FOLLITROPIN
     Indication: IN VITRO FERTILISATION
     Dosage: UNK

REACTIONS (1)
  - Precancerous cells present [Not Recovered/Not Resolved]

NARRATIVE: CASE EVENT DATE: 20180131
